FAERS Safety Report 4462480-5 (Version None)
Quarter: 2004Q3

REPORT INFORMATION
  Report Type: 
  Country: None (occurrence: None)
  Receive Date: 20040924
  Receipt Date: 20040908
  Transmission Date: 20050211
  Serious: Yes (Other)
  Sender: FDA-Public Use
  Company Number: DSA_24970_2004

PATIENT
  Age: 53 Year
  Sex: Female
  Weight: 103.4201 kg

DRUGS (10)
  1. CARDIZEM LA [Suspect]
     Indication: ANGINA PECTORIS
     Dosage: 480 MG Q DAY PO
     Route: 048
     Dates: start: 20040808
  2. CARDIZEM LA [Suspect]
     Indication: HYPERTENSION
     Dosage: 480 MG Q DAY PO
     Route: 048
     Dates: start: 20040808
  3. CARDIZEM LA [Suspect]
     Indication: ANGINA PECTORIS
     Dosage: 420 MG Q DAY PO
     Route: 048
     Dates: start: 20040701, end: 20040808
  4. CARDIZEM LA [Suspect]
     Indication: HYPERTENSION
     Dosage: 420 MG Q DAY PO
     Route: 048
     Dates: start: 20040701, end: 20040808
  5. CARDIZEM CD [Suspect]
     Indication: ANGINA PECTORIS
     Dosage: 240 MG Q DAY
     Dates: start: 19980101, end: 20040701
  6. CARDIZEM CD [Suspect]
     Indication: HYPERTENSION
     Dosage: 240 MG Q DAY
     Dates: start: 19980101, end: 20040701
  7. CARDIZEM CD [Suspect]
     Indication: ANGINA PECTORIS
     Dosage: 180 MG Q DAY
     Dates: start: 19960101, end: 19980101
  8. TRIAMTERENE AND HYDROCHLOROTHIAZIDE [Concomitant]
  9. PREMARIN [Concomitant]
  10. EXTRA STRENGTH TYLENOL [Concomitant]

REACTIONS (9)
  - BLOOD PRESSURE FLUCTUATION [None]
  - BLOOD PRESSURE INADEQUATELY CONTROLLED [None]
  - CONSTIPATION [None]
  - DIARRHOEA [None]
  - HEADACHE [None]
  - INSOMNIA [None]
  - NECK PAIN [None]
  - PHARYNGOLARYNGEAL PAIN [None]
  - SENSATION OF PRESSURE [None]
